FAERS Safety Report 7866529-9 (Version None)
Quarter: 2011Q4

REPORT INFORMATION
  Report Type: 
  Country: None (occurrence: None)
  Receive Date: 20111028
  Receipt Date: 20110629
  Transmission Date: 20120403
  Serious: No
  Sender: FDA-Public Use
  Company Number: US-GLAXOSMITHKLINE-A0933874A

PATIENT
  Age: 60 Year
  Sex: Female

DRUGS (13)
  1. CELEBREX [Concomitant]
  2. UNKNOWN MEDICATION [Concomitant]
  3. ADVAIR DISKUS 100/50 [Suspect]
     Indication: ASTHMA
     Dosage: 1PUFF PER DAY
     Route: 055
     Dates: start: 20000101
  4. SYNTHROID [Concomitant]
  5. METFORMIN HCL [Concomitant]
  6. PLAQUENIL [Concomitant]
  7. TRICOR [Concomitant]
  8. CLARITIN-D 24 HOUR [Concomitant]
  9. ASPIRIN [Concomitant]
  10. NEURONTIN [Concomitant]
  11. ZETIA [Concomitant]
  12. SINGULAIR [Concomitant]
  13. DIAVAN [Concomitant]

REACTIONS (2)
  - DRUG INEFFECTIVE [None]
  - PRODUCT QUALITY ISSUE [None]
